FAERS Safety Report 8500541-1 (Version None)
Quarter: 2012Q3

REPORT INFORMATION
  Report Type: 
  Country: None (occurrence: None)
  Receive Date: 20120710
  Receipt Date: 20120710
  Transmission Date: 20120928
  Serious: Yes (Other)
  Sender: FDA-Public Use
  Company Number: US-ROCHE-1062235

PATIENT
  Sex: Male

DRUGS (1)
  1. ZELBORAF [Suspect]
     Indication: SQUAMOUS CELL CARCINOMA
     Route: 065

REACTIONS (4)
  - FATIGUE [None]
  - MALIGNANT MELANOMA [None]
  - ALOPECIA [None]
  - RASH [None]
